FAERS Safety Report 10508072 (Version 1)
Quarter: 2014Q4

REPORT INFORMATION
  Report Type: Spontaneous
  Country: US (occurrence: None)
  Receive Date: 20141008
  Receipt Date: 20141008
  Transmission Date: 20150528
  Serious: No
  Sender: FDA-Public Use
  Company Number: None

PATIENT
  Age: 23 Year
  Sex: Male
  Weight: 86.18 kg

DRUGS (1)
  1. LARIAM [Suspect]
     Active Substance: MEFLOQUINE HYDROCHLORIDE
     Indication: MALARIA PROPHYLAXIS
     Dosage: 1 PILL WEEKLY
     Route: 048
     Dates: start: 19910730, end: 19920117

REACTIONS (6)
  - Abnormal dreams [None]
  - Psychotic disorder [None]
  - Anxiety [None]
  - Depression [None]
  - Mental disorder [None]
  - Insomnia [None]

NARRATIVE: CASE EVENT DATE: 19921230
